FAERS Safety Report 7204344-X (Version None)
Quarter: 2010Q4

REPORT INFORMATION
  Report Type: 
  Country: None (occurrence: None)
  Receive Date: 20101230
  Receipt Date: 20101227
  Transmission Date: 20110411
  Serious: Yes (Hospitalization)
  Sender: FDA-Public Use
  Company Number: FR-ROCHE-750457

PATIENT
  Sex: Female

DRUGS (6)
  1. RIVOTRIL [Suspect]
     Dosage: DOSE: 2.5 MG/ML, ORAL SOLUTION IN DROP.
     Route: 048
     Dates: end: 20101208
  2. RIVOTRIL [Suspect]
     Route: 048
     Dates: end: 20101208
  3. IXPRIM [Suspect]
     Dosage: STRENGTH: 37.5 MG/325 MG
     Route: 048
     Dates: end: 20101208
  4. TEMERIT [Suspect]
     Route: 048
     Dates: end: 20101208
  5. COTRIATEC [Suspect]
     Route: 048
  6. MOPRAL [Suspect]
     Route: 048

REACTIONS (4)
  - BRADYCARDIA [None]
  - HEPATITIS ACUTE [None]
  - POISONING [None]
  - RENAL FAILURE ACUTE [None]
